FAERS Safety Report 9041087 (Version 1)
Quarter: 2013Q1

REPORT INFORMATION
  Report Type: Spontaneous
  Country: US (occurrence: US)
  Receive Date: 20130129
  Receipt Date: 20130129
  Transmission Date: 20140127
  Serious: No
  Sender: FDA-Public Use
  Company Number: US-ABBOTT-06P-163-0342639-00

PATIENT
  Age: 53 None
  Sex: Female
  Weight: 50.85 kg

DRUGS (5)
  1. HUMIRA 40 MG/ 0.8 ML PRE-FILLED SYRINGE [Suspect]
     Indication: RHEUMATOID ARTHRITIS
     Route: 058
     Dates: start: 20060523
  2. KADIAN [Suspect]
     Indication: PRODUCT USED FOR UNKNOWN INDICATION
  3. NORTRIPTYLENE [Concomitant]
     Indication: NEURALGIA
     Route: 048
  4. LUNESTA [Concomitant]
     Indication: INSOMNIA
     Route: 048
  5. PREDNISONE [Concomitant]
     Indication: RHEUMATOID ARTHRITIS
     Route: 048

REACTIONS (4)
  - Joint swelling [Recovered/Resolved]
  - Local swelling [Not Recovered/Not Resolved]
  - Adverse reaction [Recovered/Resolved]
  - Pain [Recovered/Resolved]
